FAERS Safety Report 5023050-3 (Version None)
Quarter: 2006Q2

REPORT INFORMATION
  Report Type: 
  Country: None (occurrence: None)
  Receive Date: 20060426
  Receipt Date: 20060125
  Transmission Date: 20061013
  Serious: Yes (Other)
  Sender: FDA-Public Use
  Company Number: 2005154307

PATIENT
  Age: 26 Year
  Sex: Female

DRUGS (2)
  1. LYRICA [Suspect]
     Indication: BACK PAIN
     Dosage: 200 MG (50 MG, QID, INTERVAL: EVERY DAY), ORAL
     Route: 048
     Dates: start: 20051020, end: 20051104
  2. METHADONE HCL [Concomitant]

REACTIONS (1)
  - WEIGHT INCREASED [None]
